FAERS Safety Report 18862458 (Version 2)
Quarter: 2021Q1

REPORT INFORMATION
  Report Type: Report from Study
  Country: BR (occurrence: BR)
  Receive Date: 20210208
  Receipt Date: 20210212
  Transmission Date: 20210420
  Serious: Yes (Death)
  Sender: FDA-Public Use
  Company Number: BR-ROCHE-2725638

PATIENT
  Age: 48 Year
  Sex: Female
  Weight: 48 kg

DRUGS (30)
  1. OMEPRAZOLE. [Concomitant]
     Active Substance: OMEPRAZOLE
     Indication: PROPHYLAXIS
     Dates: start: 20200911
  2. TRAMAL [Concomitant]
     Active Substance: TRAMADOL
     Dates: start: 20201026, end: 20201026
  3. PLASIL [Concomitant]
     Active Substance: METOCLOPRAMIDE HYDROCHLORIDE
     Dates: start: 20201024, end: 20201024
  4. NAUSEDRON [Concomitant]
     Active Substance: ONDANSETRON HYDROCHLORIDE
     Dates: start: 20201028
  5. SUNFLOWER OIL [Concomitant]
     Active Substance: HERBALS\SUNFLOWER OIL
     Dates: start: 20201026
  6. KETOPROFEN. [Concomitant]
     Active Substance: KETOPROFEN
     Dates: start: 20201027, end: 20201030
  7. KETOPROFEN. [Concomitant]
     Active Substance: KETOPROFEN
     Dates: start: 20201123, end: 20201127
  8. PLASIL [Concomitant]
     Active Substance: METOCLOPRAMIDE HYDROCHLORIDE
     Dates: start: 20201027, end: 20201027
  9. MORPHINE [Concomitant]
     Active Substance: MORPHINE
     Dates: start: 20201024, end: 20201024
  10. NORIPURUM [Concomitant]
     Active Substance: IRON POLYMALTOSE
     Dates: start: 20201106, end: 20201106
  11. TORSILAX [Concomitant]
     Active Substance: ACETAMINOPHEN\CAFFEINE\CARISOPRODOL\DICLOFENAC
     Dates: start: 202003, end: 20200910
  12. TYLEX (BRAZIL) [Concomitant]
     Active Substance: ACETAMINOPHEN\CODEINE PHOSPHATE
     Dates: start: 20200910, end: 20201027
  13. CANNABIS [Concomitant]
     Active Substance: CANNABIS SATIVA SUBSP. INDICA TOP
     Dates: start: 20201116
  14. MORPHINE [Concomitant]
     Active Substance: MORPHINE
     Dates: start: 20201026, end: 20201026
  15. CAPECITABINE. [Suspect]
     Active Substance: CAPECITABINE
     Indication: TRIPLE NEGATIVE BREAST CANCER
     Dosage: DATE OF MOST RECENT DOSE OF CAPECITABINE (1450 MG) PRIOR TO AE ONSET: 10/SEP/2020?DATE OF MOST RECEN
     Route: 048
     Dates: start: 20200909
  16. MORPHINE [Concomitant]
     Active Substance: MORPHINE
     Dates: start: 20201111
  17. DIAZEPAN [Concomitant]
     Active Substance: DIAZEPAM
     Dates: start: 20201027, end: 20201027
  18. NAUSEDRON [Concomitant]
     Active Substance: ONDANSETRON HYDROCHLORIDE
     Dates: start: 20201106
  19. ATEZOLIZUMAB. [Suspect]
     Active Substance: ATEZOLIZUMAB
     Indication: TRIPLE NEGATIVE BREAST CANCER
     Dosage: DATE OF MOST RECENT DOSE (1200 MG/20 ML) OF ATEZOLIZUMAB PRIOR TO AE ONSET: 11/NOV/2020
     Route: 042
     Dates: start: 20200909
  20. DIPIRONE [Concomitant]
     Active Substance: METAMIZOLE SODIUM
     Dates: start: 20201111, end: 20201116
  21. AMITRIPTILINA [Concomitant]
     Active Substance: AMITRIPTYLINE HYDROCHLORIDE
     Dates: start: 20201111
  22. MINERAL OIL. [Concomitant]
     Active Substance: MINERAL OIL
     Indication: PROPHYLAXIS
     Dates: start: 202011
  23. DIPYRONE [Concomitant]
     Active Substance: DIPYRONE
     Dates: start: 202003
  24. ZOMETA [Concomitant]
     Active Substance: ZOLEDRONIC ACID
     Dates: start: 20200930
  25. MORPHINE [Concomitant]
     Active Substance: MORPHINE
     Dates: start: 20201027, end: 20201027
  26. PLATELETS [Concomitant]
     Active Substance: HUMAN PLATELET, ALLOGENIC
     Dates: start: 20210108, end: 20210108
  27. ALPHA LIPOIC ACID [Concomitant]
     Active Substance: .ALPHA.-LIPOIC ACID
     Indication: PROPHYLAXIS
     Dates: start: 20200701, end: 20201022
  28. ONDANSETRON [Concomitant]
     Active Substance: ONDANSETRON
     Dates: start: 20200921, end: 20200925
  29. TRAMAL [Concomitant]
     Active Substance: TRAMADOL
     Dates: start: 20201024, end: 20201024
  30. DIPIRONE [Concomitant]
     Active Substance: METAMIZOLE SODIUM
     Dates: start: 20201024, end: 20201024

REACTIONS (2)
  - Cancer pain [Fatal]
  - Colitis [Not Recovered/Not Resolved]

NARRATIVE: CASE EVENT DATE: 20200910
